FAERS Safety Report 6631785-1 (Version None)
Quarter: 2010Q1

REPORT INFORMATION
  Report Type: 
  Country: None (occurrence: None)
  Receive Date: 20100312
  Receipt Date: 20100302
  Transmission Date: 20100710
  Serious: Yes (Hospitalization)
  Sender: FDA-Public Use
  Company Number: US-JNJFOC-20100202654

PATIENT
  Sex: Female
  Weight: 58.06 kg

DRUGS (3)
  1. REMICADE [Suspect]
     Indication: CROHN'S DISEASE
     Route: 042
  2. MESALAMINE [Concomitant]
     Indication: CROHN'S DISEASE
  3. ANTIBIOTICS [Concomitant]
     Indication: CROHN'S DISEASE

REACTIONS (4)
  - CONDITION AGGRAVATED [None]
  - CROHN'S DISEASE [None]
  - DEPRESSION [None]
  - INTESTINAL OBSTRUCTION [None]
